FAERS Safety Report 7989278-5 (Version None)
Quarter: 2011Q4

REPORT INFORMATION
  Report Type: 
  Country: None (occurrence: None)
  Receive Date: 20111219
  Receipt Date: 20111208
  Transmission Date: 20120403
  Serious: Yes (Hospitalization, Other)
  Sender: FDA-Public Use
  Company Number: US-CELGENEUS-163-21880-11111685

PATIENT
  Sex: Female

DRUGS (2)
  1. TRANSFUSION [Concomitant]
     Route: 041
  2. REVLIMID [Suspect]
     Dosage: 10 MILLIGRAM
     Route: 048
     Dates: start: 20110902

REACTIONS (2)
  - AORTIC STENOSIS [None]
  - CARDIAC FAILURE CONGESTIVE [None]
